FAERS Safety Report 10137989 (Version 1)
Quarter: 2014Q2

REPORT INFORMATION
  Report Type: Spontaneous
  Country: TR (occurrence: TR)
  Receive Date: 20140429
  Receipt Date: 20140429
  Transmission Date: 20141212
  Serious: Yes (Hospitalization)
  Sender: FDA-Public Use
  Company Number: TR-NOVOPROD-407674

PATIENT
  Age: 18 Year
  Sex: Male
  Weight: 54 kg

DRUGS (2)
  1. NORDITROPIN SIMPLEXX [Suspect]
     Indication: GROWTH HORMONE DEFICIENCY
     Dosage: 1.3 MG, QD
     Route: 058
  2. NORDITROPIN SIMPLEXX [Suspect]
     Dosage: UNK
     Route: 058

REACTIONS (1)
  - Hospitalisation [Unknown]
